FAERS Safety Report 21266907 (Version 3)
Quarter: 2022Q3

REPORT INFORMATION
  Report Type: Report from Study
  Country: US (occurrence: US)
  Receive Date: 20220829
  Receipt Date: 20220907
  Transmission Date: 20221027
  Serious: Yes (Hospitalization)
  Sender: FDA-Public Use
  Company Number: US-NOVARTISPH-NVSC2022US187805

PATIENT
  Age: 15 Year
  Sex: Male
  Weight: 20.2 kg

DRUGS (4)
  1. TRAMETINIB [Suspect]
     Active Substance: TRAMETINIB
     Indication: Lymphatic disorder
     Dosage: UNK, 0.02 TO 0.027MG/KG/DAY
     Route: 065
     Dates: start: 20220726, end: 20220727
  2. TRAMETINIB [Suspect]
     Active Substance: TRAMETINIB
     Dosage: 0.5 MG, QD (IN THE MORNING)
     Route: 065
  3. DABRAFENIB [Suspect]
     Active Substance: DABRAFENIB
     Indication: Lymphatic disorder
     Dosage: UNK, 0.02 TO 0.027MG/KG/DAY
     Route: 065
     Dates: start: 20220726, end: 20220727
  4. OCTREOTIDE [Concomitant]
     Active Substance: OCTREOTIDE
     Indication: Product used for unknown indication
     Dosage: UNK
     Route: 058

REACTIONS (3)
  - Seizure [Recovering/Resolving]
  - Rash erythematous [Unknown]
  - Sinus arrhythmia [Unknown]

NARRATIVE: CASE EVENT DATE: 20220727
